FAERS Safety Report 8010265-5 (Version None)
Quarter: 2011Q4

REPORT INFORMATION
  Report Type: 
  Country: None (occurrence: None)
  Receive Date: 20111221
  Receipt Date: 20111207
  Transmission Date: 20120403
  Serious: Yes (Death)
  Sender: FDA-Public Use
  Company Number: 2011AP002979

PATIENT
  Age: 73 Year
  Sex: Female

DRUGS (3)
  1. MIDAZOLAM HCL [Concomitant]
  2. CITALOPRAM HYDROBROMIDE [Suspect]
     Indication: PRODUCT USED FOR UNKNOWN INDICATION
     Dosage: 40 MG
  3. OLANZAPINE [Concomitant]

REACTIONS (3)
  - CARDIAC ARREST [None]
  - HALLUCINATION [None]
  - ELECTROCARDIOGRAM QT PROLONGED [None]
